FAERS Safety Report 11604860 (Version 1)
Quarter: 2015Q4

REPORT INFORMATION
  Report Type: Spontaneous
  Country: FR (occurrence: FR)
  Receive Date: 20151007
  Receipt Date: 20151007
  Transmission Date: 20160304
  Serious: Yes (Other)
  Sender: FDA-Public Use
  Company Number: FR-PFIZER INC-2015328811

PATIENT
  Age: 73 Year
  Sex: Male

DRUGS (7)
  1. ZYLORIC [Concomitant]
     Active Substance: ALLOPURINOL
     Dosage: UNK
     Dates: end: 201506
  2. ALPRESS [Suspect]
     Active Substance: PRAZOSIN
     Dosage: UNK
     Route: 048
     Dates: start: 201409, end: 201506
  3. LAROXYL [Concomitant]
     Active Substance: AMITRIPTYLINE
     Dosage: UNK
     Dates: end: 201506
  4. CRESTOR [Concomitant]
     Active Substance: ROSUVASTATIN CALCIUM
     Dosage: UNK
     Dates: end: 201506
  5. ZARONTIN [Concomitant]
     Active Substance: ETHOSUXIMIDE
     Indication: PAIN
     Dosage: 10 ML, 2X/DAY
     Route: 048
     Dates: start: 201501
  6. AVODART [Suspect]
     Active Substance: DUTASTERIDE
     Dosage: UNK
     Dates: start: 201409, end: 201506
  7. ALDACTONE [Suspect]
     Active Substance: SPIRONOLACTONE
     Dosage: UNK
     Route: 048
     Dates: start: 201409, end: 201506

REACTIONS (3)
  - Galactorrhoea [Unknown]
  - Breast pain [Unknown]
  - Gynaecomastia [Unknown]

NARRATIVE: CASE EVENT DATE: 201503
